FAERS Safety Report 5577174-2 (Version None)
Quarter: 2007Q4

REPORT INFORMATION
  Report Type: 
  Country: None (occurrence: None)
  Receive Date: 20071130
  Receipt Date: 20070908
  Transmission Date: 20080405
  Serious: No
  Sender: FDA-Public Use
  Company Number: US200709002612

PATIENT
  Age: 52 Year
  Sex: Male
  Weight: 208.6 kg

DRUGS (2)
  1. BYETTA [Suspect]
     Indication: TYPE 2 DIABETES MELLITUS
     Dosage: 5 UG, 2/D, SUBCUTANEOUS; 10 UG, 2/D, SUBCUTANEOUS
     Route: 058
     Dates: start: 20070601, end: 20070801
  2. BYETTA [Suspect]
     Indication: TYPE 2 DIABETES MELLITUS
     Dosage: 5 UG, 2/D, SUBCUTANEOUS; 10 UG, 2/D, SUBCUTANEOUS
     Route: 058
     Dates: start: 20070801

REACTIONS (8)
  - CYSTITIS [None]
  - DECREASED APPETITE [None]
  - DYSURIA [None]
  - ERUCTATION [None]
  - IRRITABILITY [None]
  - MALAISE [None]
  - NAUSEA [None]
  - PYREXIA [None]
